FAERS Safety Report 6908740-7 (Version None)
Quarter: 2010Q3

REPORT INFORMATION
  Report Type: 
  Country: None (occurrence: None)
  Receive Date: 20100719
  Receipt Date: 20091030
  Transmission Date: 20110219
  Serious: Yes (Other)
  Sender: FDA-Public Use
  Company Number: US-WYE-H11978609

PATIENT
  Age: 68 Year
  Sex: Male
  Weight: 95.34 kg

DRUGS (4)
  1. ADVIL LIQUI-GELS [Suspect]
     Indication: ARTHRALGIA
     Dosage: ORAL ; 1-2 TABLETS TWICE DAILY, ORAL
     Route: 048
     Dates: end: 20091001
  2. ADVIL LIQUI-GELS [Suspect]
     Indication: ARTHRITIS
     Dosage: ORAL ; 1-2 TABLETS TWICE DAILY, ORAL
     Route: 048
     Dates: end: 20091001
  3. ADVIL LIQUI-GELS [Suspect]
     Indication: ARTHRALGIA
     Dosage: ORAL ; 1-2 TABLETS TWICE DAILY, ORAL
     Route: 048
     Dates: start: 20091001
  4. ADVIL LIQUI-GELS [Suspect]
     Indication: ARTHRITIS
     Dosage: ORAL ; 1-2 TABLETS TWICE DAILY, ORAL
     Route: 048
     Dates: start: 20091001

REACTIONS (1)
  - HYPERHIDROSIS [None]
